FAERS Safety Report 5675974-1 (Version None)
Quarter: 2008Q2

REPORT INFORMATION
  Report Type: 
  Country: None (occurrence: None)
  Receive Date: 20080310
  Receipt Date: 20071220
  Transmission Date: 20081010
  Serious: Yes (Other)
  Sender: FDA-Public Use
  Company Number: 07-544

PATIENT
  Age: 76 Year
  Sex: Female
  Weight: 50.8029 kg

DRUGS (4)
  1. ALEVE [Suspect]
     Indication: BACK PAIN
     Dosage: 220 MG, DAILY, ORAL
     Route: 048
     Dates: start: 20071212
  2. HEART MEDICATIONS [Concomitant]
  3. ARTHRITIS MEDICATIONS [Concomitant]
  4. CLAVICS [Concomitant]

REACTIONS (1)
  - HAEMORRHAGE [None]
